FAERS Safety Report 17135305 (Version 8)
Quarter: 2020Q2

REPORT INFORMATION
  Report Type: Spontaneous
  Country: US (occurrence: US)
  Receive Date: 20191210
  Receipt Date: 20200618
  Transmission Date: 20200713
  Serious: Yes (Other)
  Sender: FDA-Public Use
  Company Number: US-PFIZER INC-2019532372

PATIENT
  Age: 73 Year
  Sex: Female
  Weight: 70.76 kg

DRUGS (1)
  1. XELJANZ XR [Suspect]
     Active Substance: TOFACITINIB CITRATE
     Indication: PSORIATIC ARTHROPATHY
     Dosage: 11 MG, 1X/DAY
     Route: 048

REACTIONS (8)
  - Fear of disease [Unknown]
  - Malaise [Unknown]
  - Feeling abnormal [Unknown]
  - Urinary tract infection [Unknown]
  - Pain [Unknown]
  - Condition aggravated [Unknown]
  - COVID-19 [Unknown]
  - Intentional product misuse [Unknown]
